FAERS Safety Report 6954965-4 (Version None)
Quarter: 2010Q3

REPORT INFORMATION
  Report Type: 
  Country: None (occurrence: None)
  Receive Date: 20100830
  Receipt Date: 20100817
  Transmission Date: 20110219
  Serious: Yes (Other)
  Sender: FDA-Public Use
  Company Number: CO-TYCO HEALTHCARE/MALLINCKRODT-T201001823

PATIENT
  Age: 16 Year
  Sex: Female

DRUGS (3)
  1. OPTIRAY 350 [Suspect]
     Dosage: UNK
     Route: 042
     Dates: start: 20100715, end: 20100715
  2. HYDROCORTISON                      /00028601/ [Concomitant]
     Dosage: 100 MG, UNK
     Route: 042
  3. DALTEPARIN SODIUM [Concomitant]
     Dosage: 5000 UI
     Route: 042

REACTIONS (4)
  - CYANOSIS [None]
  - DYSPNOEA [None]
  - OXYGEN SATURATION DECREASED [None]
  - URTICARIA [None]
